FAERS Safety Report 11644359 (Version 1)
Quarter: 2015Q4

REPORT INFORMATION
  Report Type: Spontaneous
  Country: US (occurrence: None)
  Receive Date: 20151019
  Receipt Date: 20151019
  Transmission Date: 20160304
  Serious: Yes (Other)
  Sender: FDA-Public Use
  Company Number: None

PATIENT
  Age: 59 Year
  Sex: Female
  Weight: 81.65 kg

DRUGS (7)
  1. EPOGEN [Suspect]
     Active Substance: ERYTHROPOIETIN
     Indication: ANAEMIA
     Dosage: PER TREATMENT
  2. TIMOLOL BROMIDINE [Concomitant]
  3. HYDRALAZINE [Concomitant]
     Active Substance: HYDRALAZINE HYDROCHLORIDE
  4. INSULIN [Concomitant]
     Active Substance: INSULIN NOS
  5. CLONIDINE. [Concomitant]
     Active Substance: CLONIDINE
  6. LOPRESSOR [Concomitant]
     Active Substance: METOPROLOL TARTRATE
  7. HECTOROL [Suspect]
     Active Substance: DOXERCALCIFEROL
     Route: 042
     Dates: start: 20151016

REACTIONS (8)
  - Cough [None]
  - Pruritus [None]
  - Pain [None]
  - Sensory disturbance [None]
  - Chills [None]
  - Pyrexia [None]
  - Erythema [None]
  - Anxiety [None]

NARRATIVE: CASE EVENT DATE: 20151010
